FAERS Safety Report 21948957 (Version 1)
Quarter: 2023Q1

REPORT INFORMATION
  Report Type: Spontaneous
  Country: IT (occurrence: IT)
  Receive Date: 20230203
  Receipt Date: 20230203
  Transmission Date: 20230418
  Serious: Yes (Other)
  Sender: FDA-Public Use
  Company Number: IT-BRISTOL-MYERS SQUIBB COMPANY-2023-011922

PATIENT
  Sex: Female

DRUGS (3)
  1. FEDRATINIB [Suspect]
     Active Substance: FEDRATINIB
     Indication: Product used for unknown indication
     Dosage: DOSE : 400MG;     FREQ : ONCE DAILY
  2. FEDRATINIB [Suspect]
     Active Substance: FEDRATINIB
     Dosage: DOSE : 300MG;     FREQ : ONCE DAILY
  3. FEDRATINIB [Suspect]
     Active Substance: FEDRATINIB
     Dosage: DOSE :400MG; FREQ :ONCE DAILY

REACTIONS (1)
  - Hepatic encephalopathy [Recovered/Resolved]
